FAERS Safety Report 20943105 (Version 1)
Quarter: 2022Q2

REPORT INFORMATION
  Report Type: Spontaneous
  Country: US (occurrence: None)
  Receive Date: 20220609
  Receipt Date: 20220609
  Transmission Date: 20220721
  Serious: No
  Sender: FDA-Public Use
  Company Number: None

PATIENT
  Sex: Female
  Weight: 60.8 kg

DRUGS (7)
  1. WELIREG [Suspect]
     Active Substance: BELZUTIFAN
     Indication: Renal cancer
     Dosage: FREQUENCY : DAILY;?
     Route: 048
  2. CARVEDILOL [Concomitant]
     Active Substance: CARVEDILOL
  3. OMEPRAZOLE [Concomitant]
     Active Substance: OMEPRAZOLE
  4. MIRENA [Concomitant]
     Active Substance: LEVONORGESTREL
  5. OLANZAPINE [Concomitant]
     Active Substance: OLANZAPINE
  6. VITAMIN D [Concomitant]
     Active Substance: VITAMIN D NOS
  7. PREDNISONE [Concomitant]
     Active Substance: PREDNISONE

REACTIONS (1)
  - Disease progression [None]
